FAERS Safety Report 24334244 (Version 1)
Quarter: 2024Q3

REPORT INFORMATION
  Report Type: Spontaneous
  Country: AU (occurrence: AU)
  Receive Date: 20240918
  Receipt Date: 20240918
  Transmission Date: 20241017
  Serious: Yes (Hospitalization)
  Sender: EISAI
  Company Number: AU-Eisai-EC-2024-167915

PATIENT
  Age: 46 Year
  Sex: Female

DRUGS (3)
  1. LENVATINIB [Suspect]
     Active Substance: LENVATINIB
     Indication: Endometrial cancer
     Route: 048
     Dates: start: 2024, end: 2024
  2. LENVATINIB [Suspect]
     Active Substance: LENVATINIB
     Route: 048
     Dates: start: 2024
  3. PEMBROLIZUMAB [Suspect]
     Active Substance: PEMBROLIZUMAB
     Indication: Endometrial cancer
     Route: 042
     Dates: start: 2024

REACTIONS (6)
  - Sepsis [Unknown]
  - Vaginal haemorrhage [Unknown]
  - Blood pressure abnormal [Recovered/Resolved]
  - Constipation [Unknown]
  - Female genital tract fistula [Recovered/Resolved]
  - Urogenital fistula [Recovered/Resolved]

NARRATIVE: CASE EVENT DATE: 20240101
